FAERS Safety Report 10377087 (Version 2)
Quarter: 2014Q3

REPORT INFORMATION
  Report Type: Spontaneous
  Country: US (occurrence: US)
  Receive Date: 20140812
  Receipt Date: 20140815
  Transmission Date: 20150326
  Serious: Yes (Death, Hospitalization, Other)
  Sender: FDA-Public Use
  Company Number: US-UNITED THERAPEUTICS-UNT-2014-005240

PATIENT
  Age: 53 Year
  Sex: Female
  Weight: 80.7 kg

DRUGS (2)
  1. REMODULIN [Suspect]
     Active Substance: TREPROSTINIL
     Indication: PULMONARY ARTERIAL HYPERTENSION
     Dosage: 0.0402 ?G/KG, Q48H
     Route: 058
     Dates: start: 20140513, end: 20140728
  2. REMODULIN [Suspect]
     Active Substance: TREPROSTINIL
     Dosage: .044 ?G/KG, UNK
     Route: 058

REACTIONS (5)
  - Death [Fatal]
  - Dyspnoea [Unknown]
  - Oxygen consumption decreased [Unknown]
  - Cardiac arrest [Unknown]
  - Hypoxia [Unknown]

NARRATIVE: CASE EVENT DATE: 20140728
